FAERS Safety Report 9305945 (Version 1)
Quarter: 2013Q2

REPORT INFORMATION
  Report Type: Spontaneous
  Country: US (occurrence: US)
  Receive Date: 20130523
  Receipt Date: 20130523
  Transmission Date: 20140414
  Serious: No
  Sender: FDA-Public Use
  Company Number: US-TEVA-344554USA

PATIENT
  Sex: Female

DRUGS (1)
  1. PROGLYCEM SUSPENSION [Suspect]
     Route: 048

REACTIONS (3)
  - Hypoglycaemia [Unknown]
  - Drug ineffective [Unknown]
  - Product quality issue [None]
